FAERS Safety Report 11024972 (Version 1)
Quarter: 2015Q2

REPORT INFORMATION
  Report Type: Spontaneous
  Country: JP (occurrence: None)
  Receive Date: 20150410
  Receipt Date: 20150410
  Transmission Date: 20150821
  Serious: Yes (Hospitalization)
  Sender: FDA-Public Use
  Company Number: MAC-15-025

PATIENT
  Age: 31 Year
  Sex: Female
  Weight: 48.4 kg

DRUGS (1)
  1. METHERGINE [Suspect]
     Active Substance: METHYLERGONOVINE MALEATE
     Dosage: 0.375MG, ONCE A DAY, ORAL
     Route: 048

REACTIONS (15)
  - Mydriasis [None]
  - Cerebrovascular stenosis [None]
  - Pyrexia [None]
  - Encephalitis [None]
  - Vertebrobasilar insufficiency [None]
  - Cerebral infarction [None]
  - Somnolence [None]
  - Vasculitis [None]
  - Dysarthria [None]
  - Headache [None]
  - Dysphagia [None]
  - Depressed level of consciousness [None]
  - Seizure [None]
  - Quadriparesis [None]
  - Anaemia [None]

NARRATIVE: CASE EVENT DATE: 201503
